FAERS Safety Report 7304178-1 (Version None)
Quarter: 2011Q1

REPORT INFORMATION
  Report Type: 
  Country: None (occurrence: None)
  Receive Date: 20110221
  Receipt Date: 20110208
  Transmission Date: 20110831
  Serious: Yes (Hospitalization, Other)
  Sender: FDA-Public Use
  Company Number: US-BAYER-2011-011049

PATIENT
  Sex: Female

DRUGS (7)
  1. INTERFERON BETA-1B [Suspect]
     Indication: MULTIPLE SCLEROSIS
     Dosage: 8 MIU, QOD
     Route: 058
     Dates: start: 20101217
  2. GABAPENTIN [Concomitant]
     Dosage: 900 MG, TID
     Route: 048
  3. NORCO [Concomitant]
     Dosage: 3-4 TIMES PER DAY
  4. SEROQUEL [Concomitant]
     Dosage: ONCE PER DAY
  5. FLEXERIL [Concomitant]
     Dosage: UNK UNK, TID
  6. VALIUM [Concomitant]
     Dosage: 3-4 TIMES PER DAY
  7. NEXIUM [Concomitant]
     Dosage: UNK, BID

REACTIONS (16)
  - INJECTION SITE ERYTHEMA [None]
  - GASTROENTERITIS [None]
  - SEPSIS [None]
  - ABDOMINAL DISCOMFORT [None]
  - HAEMATEMESIS [None]
  - BLINDNESS [None]
  - INJECTION SITE PAIN [None]
  - VOMITING [None]
  - MULTIPLE SCLEROSIS [None]
  - TACHYCARDIA [None]
  - MIGRAINE [None]
  - GAIT DISTURBANCE [None]
  - DIARRHOEA [None]
  - FALL [None]
  - PNEUMONIA [None]
  - LOSS OF CONSCIOUSNESS [None]
